FAERS Safety Report 6081155-2 (Version None)
Quarter: 2009Q1

REPORT INFORMATION
  Report Type: 
  Country: None (occurrence: None)
  Receive Date: 20090217
  Receipt Date: 20090205
  Transmission Date: 20090719
  Serious: Yes (Other)
  Sender: FDA-Public Use
  Company Number: US-GENENTECH-276744

PATIENT
  Age: 52 Year
  Sex: Male
  Weight: 115.65 kg

DRUGS (1)
  1. RAPTIVA [Suspect]
     Indication: PSORIASIS
     Dosage: 0.125 UNK, 1/WEEK
     Route: 058

REACTIONS (1)
  - BALANCE DISORDER [None]
